FAERS Safety Report 6707132-3 (Version None)
Quarter: 2010Q2

REPORT INFORMATION
  Report Type: 
  Country: None (occurrence: None)
  Receive Date: 20100503
  Receipt Date: 20100311
  Transmission Date: 20101027
  Serious: Yes (Other)
  Sender: FDA-Public Use
  Company Number: BR-BRISTOL-MYERS SQUIBB COMPANY-15082050

PATIENT
  Age: 68 Year
  Sex: Female

DRUGS (8)
  1. GLIFAGE XR [Suspect]
     Indication: DIABETES MELLITUS
     Dosage: DURATION:1.5 YEARS
     Route: 048
  2. HYDROCHLOROTHIAZIDE [Concomitant]
  3. GLIMEPIRIDE [Concomitant]
  4. CALCIUM CARBONATE [Concomitant]
  5. ENALAPRIL MALEATE [Concomitant]
  6. OMEPRAZOLE [Concomitant]
  7. SIMVASTATIN [Concomitant]
  8. CALCIFEROL [Concomitant]

REACTIONS (3)
  - ABDOMINAL PAIN [None]
  - ABDOMINAL PAIN UPPER [None]
  - DIABETES MELLITUS [None]
